FAERS Safety Report 10894205 (Version 3)
Quarter: 2015Q3

REPORT INFORMATION
  Report Type: Report from Study
  Country: US (occurrence: US)
  Receive Date: 20150306
  Receipt Date: 20150706
  Transmission Date: 20151125
  Serious: Yes (Other)
  Sender: FDA-Public Use
  Company Number: US-GILEAD-2015-0140533

PATIENT
  Age: 67 Year
  Sex: Female

DRUGS (1)
  1. RANOLAZINE [Suspect]
     Active Substance: RANOLAZINE
     Indication: ANGINA PECTORIS
     Dosage: 1000 MG, UNK
     Route: 048

REACTIONS (10)
  - Multiple sclerosis [Unknown]
  - Hypertension [Unknown]
  - Emphysema [Unknown]
  - Malaise [Unknown]
  - Communication disorder [Unknown]
  - Stent placement [Unknown]
  - Intentional product use issue [Unknown]
  - Inability to afford medication [Unknown]
  - Diabetes mellitus [Unknown]
  - Chronic obstructive pulmonary disease [Unknown]
